FAERS Safety Report 18230019 (Version 5)
Quarter: 2021Q4

REPORT INFORMATION
  Report Type: Report from Study
  Country: None (occurrence: KR)
  Receive Date: 20200904
  Receipt Date: 20211027
  Transmission Date: 20220303
  Serious: Yes (Hospitalization, Other)
  Sender: FDA-Public Use
  Company Number: KR-ABBVIE-20K-090-3549869-00

PATIENT
  Age: 68 Year
  Sex: Male
  Weight: 52 kg

DRUGS (2)
  1. GLECAPREVIR\PIBRENTASVIR [Suspect]
     Active Substance: GLECAPREVIR\PIBRENTASVIR
     Indication: Chronic hepatitis C
     Route: 048
     Dates: start: 20200301, end: 20200506
  2. URSODIOL [Concomitant]
     Active Substance: URSODIOL
     Indication: Hepatocellular carcinoma
     Route: 048
     Dates: start: 20200228

REACTIONS (1)
  - Hepatocellular carcinoma [Recovering/Resolving]

NARRATIVE: CASE EVENT DATE: 20200609
